FAERS Safety Report 6725598-X (Version None)
Quarter: 2010Q2

REPORT INFORMATION
  Report Type: 
  Country: None (occurrence: None)
  Receive Date: 20100512
  Receipt Date: 20100415
  Transmission Date: 20101027
  Serious: Yes (Hospitalization)
  Sender: FDA-Public Use
  Company Number: 2010SP021596

PATIENT
  Sex: Female
  Weight: 56 kg

DRUGS (3)
  1. LEIOS (EUGYNON /00022701/) [Suspect]
     Indication: CONTRACEPTION
     Dates: end: 20100205
  2. IMPLANON [Suspect]
     Indication: CONTRACEPTION
     Dosage: 1 DF
  3. NUVARING [Suspect]
     Indication: CONTRACEPTION

REACTIONS (9)
  - CEREBRAL INFARCTION [None]
  - DISTURBANCE IN ATTENTION [None]
  - DRUG INTOLERANCE [None]
  - ERYTHEMA [None]
  - FATIGUE [None]
  - GENERAL PHYSICAL CONDITION ABNORMAL [None]
  - HEMIPARESIS [None]
  - MEMORY IMPAIRMENT [None]
  - MENTAL DISORDER [None]
